FAERS Safety Report 15855956 (Version 2)
Quarter: 2019Q1

REPORT INFORMATION
  Report Type: Spontaneous
  Country: PT (occurrence: PT)
  Receive Date: 20190122
  Receipt Date: 20190220
  Transmission Date: 20190417
  Serious: Yes (Other)
  Sender: FDA-Public Use
  Company Number: PT-BRISTOL-MYERS SQUIBB COMPANY-BMS-2019-005000

PATIENT
  Age: 69 Year
  Sex: Male

DRUGS (6)
  1. LIXIANA [Concomitant]
     Active Substance: EDOXABAN TOSYLATE
     Indication: PULMONARY EMBOLISM
     Dosage: 60 UNITS NOS, UNK
     Route: 048
     Dates: start: 20181128
  2. SERTRALINE [Concomitant]
     Active Substance: SERTRALINE HYDROCHLORIDE
     Indication: DEPRESSION
     Dosage: 100 MG, UNK
     Route: 048
     Dates: start: 20181106
  3. ZOLPIDEM [Concomitant]
     Active Substance: ZOLPIDEM\ZOLPIDEM TARTRATE
     Indication: INSOMNIA
     Dosage: 1 DOSE
     Route: 048
     Dates: start: 20181106
  4. SALBUTAMOL [Concomitant]
     Active Substance: ALBUTEROL
     Indication: CHRONIC OBSTRUCTIVE PULMONARY DISEASE
     Dosage: 1000 ?G, UNK
     Route: 050
     Dates: start: 20180801
  5. TRAMADOL. [Concomitant]
     Active Substance: TRAMADOL
     Indication: PAIN
     Dosage: UNK
     Route: 048
     Dates: start: 20181128
  6. NIVOLUMAB [Suspect]
     Active Substance: NIVOLUMAB
     Indication: NON-SMALL CELL LUNG CANCER
     Dosage: UNK
     Route: 042
     Dates: start: 20181210, end: 20181228

REACTIONS (5)
  - Dyspnoea [Recovered/Resolved]
  - Bradycardia [Unknown]
  - Cyanosis [Unknown]
  - Hypotension [Unknown]
  - Tremor [Unknown]

NARRATIVE: CASE EVENT DATE: 20181228
